FAERS Safety Report 12181811 (Version 1)
Quarter: 2016Q1

REPORT INFORMATION
  Report Type: Spontaneous
  Country: US (occurrence: US)
  Receive Date: 20160315
  Receipt Date: 20160315
  Transmission Date: 20160526
  Serious: Yes (Hospitalization, Other)
  Sender: FDA-Public Use
  Company Number: US-ASTRAZENECA-2016SE26184

PATIENT
  Age: 52 Year
  Sex: Female
  Weight: 49.9 kg

DRUGS (11)
  1. PRILOSEC [Suspect]
     Active Substance: OMEPRAZOLE MAGNESIUM
     Indication: BARRETT^S OESOPHAGUS
     Route: 048
     Dates: start: 2015, end: 20160213
  2. HUMIRA [Suspect]
     Active Substance: ADALIMUMAB
     Indication: COLITIS ULCERATIVE
     Dosage: LOADING DOSE (160 MG,ONCE)
     Route: 058
     Dates: start: 201506, end: 201506
  3. VSL 3 [Concomitant]
     Indication: COLITIS ULCERATIVE
  4. PRILOSEC OTC [Suspect]
     Active Substance: OMEPRAZOLE MAGNESIUM
     Indication: BARRETT^S OESOPHAGUS
     Route: 048
  5. VITAMIN B12 [Concomitant]
     Active Substance: CYANOCOBALAMIN
     Indication: PERNICIOUS ANAEMIA
  6. PRILOSEC [Suspect]
     Active Substance: OMEPRAZOLE MAGNESIUM
     Indication: BARRETT^S OESOPHAGUS
     Route: 048
     Dates: end: 2015
  7. PRILOSEC [Suspect]
     Active Substance: OMEPRAZOLE MAGNESIUM
     Indication: BARRETT^S OESOPHAGUS
     Route: 048
     Dates: start: 20160216
  8. CLONAZEPAM. [Concomitant]
     Active Substance: CLONAZEPAM
     Indication: ANXIETY
  9. HUMIRA [Suspect]
     Active Substance: ADALIMUMAB
     Indication: COLITIS ULCERATIVE
     Dosage: STARTED TWO WEEKS AFTER 80 MG DOSE (40 MG, 1 IN 2 WK)
     Route: 058
     Dates: start: 2015, end: 201512
  10. HUMIRA [Suspect]
     Active Substance: ADALIMUMAB
     Indication: COLITIS ULCERATIVE
     Dosage: (40 MG,L IN 1M)
     Route: 058
     Dates: start: 201512
  11. HUMIRA [Suspect]
     Active Substance: ADALIMUMAB
     Indication: COLITIS ULCERATIVE
     Dosage: LOADING DOSE, TWO WEEKS AFTER 160 MG DOSE (80 MG,ONCE)
     Route: 058
     Dates: start: 2015, end: 2015

REACTIONS (11)
  - Iron deficiency anaemia [Unknown]
  - Arthralgia [Unknown]
  - Bone pain [Unknown]
  - Inappropriate schedule of drug administration [Unknown]
  - Rectal haemorrhage [Recovered/Resolved]
  - Off label use [Unknown]
  - Feeling cold [Unknown]
  - Pernicious anaemia [Unknown]
  - Hot flush [Unknown]
  - Arthralgia [Unknown]
  - Product use issue [Unknown]

NARRATIVE: CASE EVENT DATE: 2015
